FAERS Safety Report 5417284-3 (Version None)
Quarter: 2007Q3

REPORT INFORMATION
  Report Type: 
  Country: None (occurrence: None)
  Receive Date: 20070718
  Receipt Date: 20060816
  Transmission Date: 20080115
  Serious: Yes (Hospitalization, Other)
  Sender: FDA-Public Use
  Company Number: 2005137611

PATIENT
  Age: 58 Year
  Sex: Female
  Weight: 87.9978 kg

DRUGS (9)
  1. CELEBREX [Suspect]
     Indication: ILL-DEFINED DISORDER
     Dates: start: 20000201
  2. TAMOXIFEN CITRATE [Concomitant]
  3. AMARYL [Concomitant]
  4. BENADRYL [Concomitant]
  5. NORFLEX [Concomitant]
  6. ACIPHEX [Concomitant]
  7. QUININE SULFATE [Concomitant]
  8. SYNTHROID [Concomitant]
  9. SINEMET [Concomitant]

REACTIONS (1)
  - ACUTE MYOCARDIAL INFARCTION [None]
